FAERS Safety Report 24922957 (Version 1)
Quarter: 2025Q1

REPORT INFORMATION
  Report Type: Spontaneous
  Country: FR (occurrence: FR)
  Receive Date: 20250204
  Receipt Date: 20250204
  Transmission Date: 20250408
  Serious: Yes (Other)
  Sender: PFIZER
  Company Number: None

PATIENT
  Age: 55 Year
  Sex: Male
  Weight: 97 kg

DRUGS (6)
  1. LORLATINIB [Suspect]
     Active Substance: LORLATINIB
     Indication: Non-small cell lung cancer
     Dosage: 160 MG, 1X/DAY
     Route: 048
     Dates: start: 20240306, end: 20241015
  2. IRBESARTAN [Concomitant]
     Active Substance: IRBESARTAN
  3. NEBIVOLOL [Concomitant]
     Active Substance: NEBIVOLOL
  4. ESOMEPRAZOLE [Concomitant]
     Active Substance: ESOMEPRAZOLE
  5. LOPRAZOLAM [Concomitant]
     Active Substance: LOPRAZOLAM
  6. ACUPAN [Concomitant]
     Active Substance: NEFOPAM HYDROCHLORIDE

REACTIONS (9)
  - Generalised oedema [Recovered/Resolved]
  - Abnormal weight gain [Recovered/Resolved]
  - Sleep apnoea syndrome [Recovered/Resolved]
  - Dyspnoea exertional [Recovered/Resolved]
  - Dysphonia [Recovered/Resolved]
  - Hypertension [Recovered/Resolved]
  - Hypertriglyceridaemia [Recovered/Resolved]
  - Gamma-glutamyltransferase increased [Recovered/Resolved]
  - Off label use [Unknown]

NARRATIVE: CASE EVENT DATE: 20240306
